FAERS Safety Report 4964198-9 (Version None)
Quarter: 2006Q2

REPORT INFORMATION
  Report Type: 
  Country: None (occurrence: None)
  Receive Date: 20060404
  Receipt Date: 20060404
  Transmission Date: 20061013
  Serious: Yes (Hospitalization, Other)
  Sender: FDA-Public Use
  Company Number: None

PATIENT
  Sex: Female

DRUGS (2)
  1. CYCLOPHOSPHAMIDE [Suspect]
     Indication: BREAST CANCER
     Dosage: 600 MG
     Dates: start: 20060103
  2. DOXORUBICIN HCL [Suspect]
     Dosage: 60 MG
     Dates: start: 20060103

REACTIONS (6)
  - ASTHENIA [None]
  - DIZZINESS [None]
  - HYPOCALCAEMIA [None]
  - HYPOVOLAEMIA [None]
  - NAUSEA [None]
  - VOMITING [None]
